FAERS Safety Report 5028508-9 (Version None)
Quarter: 2006Q2

REPORT INFORMATION
  Report Type: 
  Country: None (occurrence: None)
  Receive Date: 20060617
  Receipt Date: 20060612
  Transmission Date: 20061013
  Serious: Yes (Death)
  Sender: FDA-Public Use
  Company Number: 2006AC01102

PATIENT
  Age: 41 Year
  Sex: Female

DRUGS (5)
  1. SEROQUEL [Suspect]
     Route: 048
  2. CODEINE [Suspect]
  3. ACETAMINOPHEN [Suspect]
  4. CARBAMAZEPINE [Suspect]
  5. VENLAFAXINE HCL [Suspect]

REACTIONS (5)
  - BRAIN OEDEMA [None]
  - CEREBRAL ARTERIOSCLEROSIS [None]
  - COMPLETED SUICIDE [None]
  - DRUG TOXICITY [None]
  - PULMONARY CONGESTION [None]
